FAERS Safety Report 15806844 (Version 1)
Quarter: 2019Q1

REPORT INFORMATION
  Report Type: Spontaneous
  Country: US (occurrence: US)
  Receive Date: 20190107
  Receipt Date: 20190107
  Transmission Date: 20190417
  Serious: No
  Sender: FDA-Public Use
  Company Number: None

PATIENT

DRUGS (2)
  1. METOCLOPRAMIDE. [Suspect]
     Active Substance: METOCLOPRAMIDE
     Dosage: OTHER FREQUENCY:UNIT DOSE CUP;?SOLUTION ORAL
     Route: 048
  2. MEGESTROL ACETATE. [Suspect]
     Active Substance: MEGESTROL ACETATE
     Dosage: SOLUTION ORAL UNIT DOSE  CUP
     Route: 048

REACTIONS (1)
  - Product appearance confusion [None]
